FAERS Safety Report 9912632 (Version 1)
Quarter: 2014Q1

REPORT INFORMATION
  Report Type: Report from Study
  Country: US (occurrence: US)
  Receive Date: 20140220
  Receipt Date: 20140220
  Transmission Date: 20141002
  Serious: Yes (Hospitalization, Other)
  Sender: FDA-Public Use
  Company Number: US-ROCHE-1348946

PATIENT
  Sex: Female

DRUGS (14)
  1. AVASTIN [Suspect]
     Indication: DIABETIC RETINAL OEDEMA
     Dosage: RIGHT EYE
     Route: 050
     Dates: end: 2013
  2. LUCENTIS [Suspect]
     Indication: DIABETIC RETINAL OEDEMA
     Dosage: RIGHT EYE
     Route: 050
     Dates: start: 201304
  3. LUCENTIS [Suspect]
     Dosage: RIGHT EYE, MOST RECENT INJECTION WAS ON 08-JAN-2014
     Route: 050
  4. CRESTOR [Concomitant]
     Indication: BLOOD CHOLESTEROL INCREASED
     Route: 065
  5. LANTUS [Concomitant]
     Dosage: AT NIGHT
     Route: 065
  6. FOLIC ACID [Concomitant]
     Route: 065
  7. FERROUS SULFATE [Concomitant]
     Route: 065
  8. PROZAC [Concomitant]
     Indication: DEPRESSION
     Route: 065
  9. OMEPRAZOLE [Concomitant]
     Route: 065
  10. SODIUM BICARBONATE [Concomitant]
     Route: 065
  11. ALPRAZOLAM [Concomitant]
     Indication: ANXIETY
     Dosage: AS NEEDED
     Route: 065
  12. CHOLESTYRAMINE [Concomitant]
     Dosage: TAKE 1 4MG PACKET TWICE A DAY
     Route: 065
  13. SYSTANE [Concomitant]
     Route: 065
  14. INSULIN [Concomitant]
     Dosage: SLIDING DOSE
     Route: 065

REACTIONS (14)
  - Intestinal obstruction [Unknown]
  - Blindness [Unknown]
  - Pain [Unknown]
  - Reading disorder [Unknown]
  - Nausea [Unknown]
  - Diarrhoea [Not Recovered/Not Resolved]
  - Gastritis [Not Recovered/Not Resolved]
  - Neuropathy peripheral [Unknown]
  - Ulcer haemorrhage [Unknown]
  - Renal failure [Unknown]
  - Limb crushing injury [Unknown]
  - Malaise [Unknown]
  - Stress [Unknown]
  - Blood glucose increased [Unknown]
